FAERS Safety Report 7639539-4 (Version None)
Quarter: 2011Q3

REPORT INFORMATION
  Report Type: 
  Country: None (occurrence: None)
  Receive Date: 20110727
  Receipt Date: 20110721
  Transmission Date: 20111222
  Serious: Yes (Hospitalization)
  Sender: FDA-Public Use
  Company Number: FR-VIIV HEALTHCARE LIMITED-B0734273A

PATIENT
  Sex: Female

DRUGS (6)
  1. VANCOMYCINE HYDROCHLORIDE [Suspect]
     Dosage: 250MG PER DAY
     Route: 042
     Dates: start: 20110514, end: 20110523
  2. CELSENTRI [Suspect]
     Indication: HIV INFECTION
     Dosage: 150MG PER DAY
     Route: 048
     Dates: start: 20110427, end: 20110526
  3. GENTAMICIN [Concomitant]
     Route: 042
     Dates: start: 20110514, end: 20110516
  4. CIPROFLOXACIN HCL [Concomitant]
     Route: 065
     Dates: start: 20110514
  5. ISENTRESS [Suspect]
     Indication: HIV INFECTION
     Dosage: 400MG PER DAY
     Route: 048
     Dates: start: 20110427, end: 20110526
  6. BACTRIM [Suspect]
     Indication: PRODUCT USED FOR UNKNOWN INDICATION
     Dosage: 10ML TWO TIMES PER WEEK
     Route: 048
     Dates: start: 20110514, end: 20110604

REACTIONS (7)
  - TONGUE BITING [None]
  - TREATMENT NONCOMPLIANCE [None]
  - TREMOR [None]
  - NYSTAGMUS [None]
  - MYOCLONUS [None]
  - CONVULSION [None]
  - REFLEXES ABNORMAL [None]
